FAERS Safety Report 4324178-3 (Version None)
Quarter: 2004Q1

REPORT INFORMATION
  Report Type: 
  Country: None (occurrence: None)
  Receive Date: 20040326
  Receipt Date: 20040105
  Transmission Date: 20041129
  Serious: No
  Sender: FDA-Public Use
  Company Number: US-GLAXOSMITHKLINE-A0491364A

PATIENT
  Age: 65 Year
  Sex: Female

DRUGS (8)
  1. ADVAIR DISKUS 100/50 [Suspect]
     Dosage: 1PUFF TWICE PER DAY
     Route: 055
     Dates: start: 20030601
  2. SINGULAIR [Concomitant]
  3. TAMOXIFEN CITRATE [Concomitant]
  4. NORVASC [Concomitant]
  5. ZETIA [Concomitant]
  6. FOSAMAX [Concomitant]
  7. CALTRATE [Concomitant]
  8. CENTRUM [Concomitant]

REACTIONS (4)
  - BRONCHITIS [None]
  - COUGH [None]
  - PYREXIA [None]
  - WHEEZING [None]
